FAERS Safety Report 6864380-X (Version None)
Quarter: 2010Q3

REPORT INFORMATION
  Report Type: 
  Country: None (occurrence: None)
  Receive Date: 20100721
  Receipt Date: 20080826
  Transmission Date: 20110219
  Serious: No
  Sender: FDA-Public Use
  Company Number: US-PFIZER INC-2008025559

PATIENT
  Sex: Female
  Weight: 93.2 kg

DRUGS (3)
  1. CHANTIX [Suspect]
     Indication: SMOKING CESSATION THERAPY
     Route: 048
     Dates: start: 20080312
  2. SEROQUEL [Concomitant]
     Dates: start: 20050101
  3. DEPAKOTE [Concomitant]
     Dates: start: 20050101

REACTIONS (1)
  - INSOMNIA [None]
